FAERS Safety Report 5199913-5 (Version None)
Quarter: 2007Q1

REPORT INFORMATION
  Report Type: 
  Country: None (occurrence: None)
  Receive Date: 20070103
  Receipt Date: 20061221
  Transmission Date: 20070707
  Serious: Yes (Other)
  Sender: FDA-Public Use
  Company Number: 06-001533

PATIENT
  Sex: Female
  Weight: 54.4 kg

DRUGS (9)
  1. FEMRING [Suspect]
     Dosage: 0.05 MG, QD, VAGINAL
     Route: 067
     Dates: start: 20040101
  2. COUMADIN [Concomitant]
  3. LANOXIN [Concomitant]
  4. DILTIAZEM [Concomitant]
  5. PROMETRIUM [Concomitant]
  6. OXYTROL  /00538901/ (OXYBUTYNIN) PATCH [Concomitant]
  7. POTASSIUM (POTASSIUM) [Concomitant]
  8. DIURETICS [Concomitant]
  9. ALLERGY MEDICATION [Concomitant]

REACTIONS (14)
  - ABDOMINAL DISTENSION [None]
  - ALOPECIA [None]
  - AMNESIA [None]
  - BREAST TENDERNESS [None]
  - CARDIAC PACEMAKER INSERTION [None]
  - CRYING [None]
  - DISTURBANCE IN ATTENTION [None]
  - DRUG ADMINISTRATION ERROR [None]
  - DYSMENORRHOEA [None]
  - MELANOCYTIC NAEVUS [None]
  - METRORRHAGIA [None]
  - SKIN CANCER [None]
  - THINKING ABNORMAL [None]
  - VULVOVAGINAL DISCOMFORT [None]
